FAERS Safety Report 18249595 (Version 3)
Quarter: 2020Q4

REPORT INFORMATION
  Report Type: Report from Study
  Country: US (occurrence: US)
  Receive Date: 20200909
  Receipt Date: 20201202
  Transmission Date: 20210113
  Serious: Yes (Other)
  Sender: FDA-Public Use
  Company Number: US-BIOVITRUM-2020US3076

PATIENT
  Age: 45 Year
  Sex: Female

DRUGS (2)
  1. CYMBALTA [Suspect]
     Active Substance: DULOXETINE HYDROCHLORIDE
     Indication: PRODUCT USED FOR UNKNOWN INDICATION
  2. KINERET [Suspect]
     Active Substance: ANAKINRA
     Indication: CRYOPYRIN ASSOCIATED PERIODIC SYNDROME
     Route: 058
     Dates: start: 20190423

REACTIONS (18)
  - Hepatic enzyme increased [Unknown]
  - Cryopyrin associated periodic syndrome [Unknown]
  - Scar [Unknown]
  - Arthralgia [Unknown]
  - Condition aggravated [Unknown]
  - Depression [Unknown]
  - Infection [Unknown]
  - Fall [Unknown]
  - Adverse drug reaction [Unknown]
  - Product dispensing issue [Unknown]
  - Vomiting [Unknown]
  - Injection site pain [Unknown]
  - Joint injury [Unknown]
  - Rash [Unknown]
  - Limb injury [Unknown]
  - Off label use [Unknown]
  - Loss of consciousness [Unknown]
  - Product quality issue [Unknown]

NARRATIVE: CASE EVENT DATE: 20190423
